FAERS Safety Report 6838696-7 (Version None)
Quarter: 2010Q3

REPORT INFORMATION
  Report Type: 
  Country: None (occurrence: None)
  Receive Date: 20100713
  Receipt Date: 20070619
  Transmission Date: 20110219
  Serious: Yes (Other)
  Sender: FDA-Public Use
  Company Number: US-PFIZER INC-2007035385

PATIENT
  Sex: Female

DRUGS (1)
  1. CHANTIX [Suspect]
     Dates: start: 20070421

REACTIONS (4)
  - HEART RATE IRREGULAR [None]
  - PALPITATIONS [None]
  - UNEVALUABLE EVENT [None]
  - VASODILATATION [None]
